FAERS Safety Report 18248596 (Version 1)
Quarter: 2020Q3

REPORT INFORMATION
  Report Type: Spontaneous
  Country: US (occurrence: US)
  Receive Date: 20200909
  Receipt Date: 20200909
  Transmission Date: 20201103
  Serious: No
  Sender: FDA-Public Use
  Company Number: US-AMERICAN REGENT INC-2019001750

PATIENT
  Age: 3 Decade
  Sex: Female

DRUGS (1)
  1. INJECTAFER [Suspect]
     Active Substance: FERRIC CARBOXYMALTOSE
     Dosage: UNK UNKNOWN, SINGLE
     Route: 042

REACTIONS (3)
  - Pain [Unknown]
  - Fatigue [Recovered/Resolved]
  - Influenza like illness [Unknown]
